FAERS Safety Report 8083143-3 (Version None)
Quarter: 2012Q1

REPORT INFORMATION
  Report Type: 
  Country: None (occurrence: None)
  Receive Date: 20120127
  Receipt Date: 20110208
  Transmission Date: 20120608
  Serious: No
  Sender: FDA-Public Use
  Company Number: US-ABBOTT-11P-163-0704440-00

PATIENT
  Sex: Female
  Weight: 65.83 kg

DRUGS (1)
  1. HUMIRA [Suspect]
     Indication: CROHN'S DISEASE
     Dosage: CROHN'S STARTER KIT, 4 AT 1 TIME
     Route: 058
     Dates: start: 20110130, end: 20110130

REACTIONS (7)
  - ERYTHEMA [None]
  - OROPHARYNGEAL PAIN [None]
  - PYREXIA [None]
  - SWELLING FACE [None]
  - CONJUNCTIVITIS [None]
  - INJECTION SITE ERYTHEMA [None]
  - URTICARIA [None]
